FAERS Safety Report 7972640-4 (Version None)
Quarter: 2011Q4

REPORT INFORMATION
  Report Type: 
  Country: None (occurrence: None)
  Receive Date: 20111213
  Receipt Date: 20111202
  Transmission Date: 20120403
  Serious: Yes (Other)
  Sender: FDA-Public Use
  Company Number: FR-JNJFOC-20111204696

PATIENT
  Sex: Female

DRUGS (1)
  1. ACETAMINOPHEN AND TRAMADOL HCL [Suspect]
     Indication: DYSMENORRHOEA
     Dosage: 37.5 MG/325 MG, EFFERVESCENT TABLET
     Route: 048
     Dates: start: 20111027, end: 20111027

REACTIONS (2)
  - VOMITING [None]
  - CEREBELLAR SYNDROME [None]
